FAERS Safety Report 11599524 (Version 1)
Quarter: 2015Q3

REPORT INFORMATION
  Report Type: Spontaneous
  Country: US (occurrence: US)
  Receive Date: 20150916
  Receipt Date: 20150916
  Transmission Date: 20151125
  Serious: No
  Sender: FDA-Public Use
  Company Number: US-ELI_LILLY_AND_COMPANY-US200711002016

PATIENT
  Sex: Female

DRUGS (2)
  1. CALTRATE /00108001/ [Concomitant]
     Dosage: 1 D/F, DAILY (1/D)
     Dates: start: 20071105
  2. FORTEO [Suspect]
     Active Substance: TERIPARATIDE
     Indication: OSTEOPOROSIS
     Dosage: UNK, UNK
     Dates: start: 20071018, end: 20071113

REACTIONS (6)
  - Nausea [Recovered/Resolved]
  - Hearing impaired [Not Recovered/Not Resolved]
  - Nervousness [Recovered/Resolved]
  - Anxiety [Recovered/Resolved]
  - Malaise [Recovered/Resolved]
  - Feeling cold [Recovered/Resolved]

NARRATIVE: CASE EVENT DATE: 20071018
